FAERS Safety Report 5669307-4 (Version None)
Quarter: 2008Q1

REPORT INFORMATION
  Report Type: 
  Country: None (occurrence: None)
  Receive Date: 20080313
  Receipt Date: 20080313
  Transmission Date: 20080703
  Serious: Yes (Hospitalization)
  Sender: FDA-Public Use
  Company Number: None

PATIENT
  Sex: Female
  Weight: 69.3 kg

DRUGS (15)
  1. SUNITINIB [Suspect]
     Indication: RENAL CANCER METASTATIC
     Dosage: 37.5 MG DAILY ORAL
     Route: 048
     Dates: start: 20071212, end: 20080226
  2. SUNITINIB [Suspect]
     Indication: RENAL CANCER METASTATIC
     Dosage: 50 MG DAILY ORAL
     Route: 048
     Dates: start: 20070620, end: 20071122
  3. NICODERM [Concomitant]
  4. PERCOCET [Concomitant]
  5. SENNA [Concomitant]
  6. COMBIVENT [Concomitant]
  7. PRILOSEC [Concomitant]
  8. XYLOCAINE VISCOUS [Concomitant]
  9. TYLENOL (CAPLET) [Concomitant]
  10. LISINOPRIL [Concomitant]
  11. ABILIFY [Concomitant]
  12. HIFEDIPINE XL [Concomitant]
  13. SIMVASTATIN [Concomitant]
  14. DEPAKOTE [Concomitant]
  15. ADVAIR DISKUS 100/50 [Concomitant]

REACTIONS (5)
  - ADENOCARCINOMA [None]
  - DISEASE PROGRESSION [None]
  - FLANK PAIN [None]
  - MALIGNANT PLEURAL EFFUSION [None]
  - METASTATIC NEOPLASM [None]
